FAERS Safety Report 25185040 (Version 1)
Quarter: 2025Q2

REPORT INFORMATION
  Report Type: Report from Study
  Country: US (occurrence: US)
  Receive Date: 20250410
  Receipt Date: 20250410
  Transmission Date: 20250717
  Serious: Yes (Hospitalization)
  Sender: EISAI
  Company Number: US-Eisai-EC-2025-187122

PATIENT
  Age: 65 Year
  Sex: Female

DRUGS (4)
  1. LENVIMA [Suspect]
     Active Substance: LENVATINIB
     Indication: Renal cell carcinoma
     Dates: start: 202305, end: 20230929
  2. LENVIMA [Suspect]
     Active Substance: LENVATINIB
     Dates: start: 2023, end: 20231028
  3. LENVIMA [Suspect]
     Active Substance: LENVATINIB
  4. KEYTRUDA [Suspect]
     Active Substance: PEMBROLIZUMAB
     Indication: Renal cancer

REACTIONS (2)
  - Adrenal insufficiency [Recovered/Resolved]
  - Seizure [Recovered/Resolved]

NARRATIVE: CASE EVENT DATE: 20231028
